FAERS Safety Report 6837221-4 (Version None)
Quarter: 2010Q3

REPORT INFORMATION
  Report Type: 
  Country: None (occurrence: None)
  Receive Date: 20100707
  Receipt Date: 20100628
  Transmission Date: 20110219
  Serious: Yes (Death)
  Sender: FDA-Public Use
  Company Number: 2010EU003056

PATIENT
  Age: 1 Year
  Sex: Female
  Weight: 7.9 kg

DRUGS (3)
  1. PROGRAF [Suspect]
     Indication: LIVER TRANSPLANT
     Dosage: 1.2 MG, BID, ORAL
     Route: 048
     Dates: start: 20071101, end: 20080901
  2. PREDNISONE [Suspect]
     Indication: LIVER TRANSPLANT
     Dosage: 2 MG/KG, UID/QD, ORAL; 3 MG, /D, ORAL
     Route: 048
     Dates: start: 20071101, end: 20080901
  3. PREDNISONE [Suspect]
     Indication: LIVER TRANSPLANT
     Dosage: 2 MG/KG, UID/QD, ORAL; 3 MG, /D, ORAL
     Route: 048
     Dates: start: 20071101

REACTIONS (12)
  - ACUTE RESPIRATORY DISTRESS SYNDROME [None]
  - AGRANULOCYTOSIS [None]
  - BRONCHIAL OBSTRUCTION [None]
  - EPSTEIN-BARR VIRUS TEST POSITIVE [None]
  - LIVER TRANSPLANT REJECTION [None]
  - MULTIPLE-DRUG RESISTANCE [None]
  - NEUTROPENIA [None]
  - PNEUMOCYSTIS JIROVECI PNEUMONIA [None]
  - PULMONARY GRANULOMA [None]
  - RESPIRATORY FAILURE [None]
  - ROSEOLOVIRUS TEST POSITIVE [None]
  - TRACHEAL OBSTRUCTION [None]
